FAERS Safety Report 9641920 (Version 3)
Quarter: 2013Q4

REPORT INFORMATION
  Report Type: Spontaneous
  Country: US (occurrence: US)
  Receive Date: 20131023
  Receipt Date: 20131127
  Transmission Date: 20140711
  Serious: Yes (Other)
  Sender: FDA-Public Use
  Company Number: CHPA2013US015792

PATIENT
  Age: 85 Year
  Sex: Female

DRUGS (6)
  1. KERI ADVANCED [Suspect]
     Indication: DRY SKIN
     Dosage: UNK DF, SEVERAL TIMES A DAY
     Route: 061
  2. KERI ORIGINAL [Suspect]
     Indication: DRY SKIN
     Dosage: UNK DF, SEVERAL TIMES A DAY
     Route: 061
  3. ANTIHYPERTENSIVES [Concomitant]
     Indication: HYPERTENSION
  4. SYNTHROID [Concomitant]
     Indication: THYROID DISORDER
     Dosage: 88 UG, QD
  5. ZOCOR [Concomitant]
     Indication: BLOOD CHOLESTEROL INCREASED
     Dosage: UNK, QD
  6. LIPITOR [Concomitant]
     Indication: BLOOD CHOLESTEROL INCREASED

REACTIONS (2)
  - Hypertension [Not Recovered/Not Resolved]
  - Dry mouth [Not Recovered/Not Resolved]
